FAERS Safety Report 16130436 (Version 1)
Quarter: 2019Q2

REPORT INFORMATION
  Report Type: Spontaneous
  Country: DE (occurrence: DE)
  Receive Date: 20190328
  Receipt Date: 20190328
  Transmission Date: 20190711
  Serious: No
  Sender: FDA-Public Use
  Company Number: DE-B. BRAUN MEDICAL INC.-2064865

PATIENT
  Age: 55 Year
  Sex: Male
  Weight: 50 kg

DRUGS (12)
  1. SMOFLIPID [Suspect]
     Active Substance: FISH OIL\MEDIUM-CHAIN TRIGLYCERIDES\OLIVE OIL\SOYBEAN OIL
     Route: 041
  2. VITAMINS NOS [Suspect]
     Active Substance: VITAMINS
     Route: 041
  3. SODIUM CHLORIDE. [Suspect]
     Active Substance: SODIUM CHLORIDE
     Route: 041
  4. WATER FOR INJECTION [Suspect]
     Active Substance: WATER
     Route: 041
  5. ADDAVEN (TRACE ELEMENTS) [Suspect]
     Active Substance: ELECTROLYTES NOS\MINERALS
     Route: 041
  6. MAGNESIUM SULFATE. [Suspect]
     Active Substance: MAGNESIUM SULFATE
     Route: 041
  7. SODIUM GLYCEROPHOSPHATE [Suspect]
     Active Substance: SODIUM GLYCEROPHOSPHATE
     Route: 041
  8. DEXTROSE INJECTIONS USP 0264-7510-00 0264-7510-20 [Suspect]
     Active Substance: DEXTROSE
     Indication: MALNUTRITION
     Route: 042
  9. POTASSIUM CHLORIDE. [Suspect]
     Active Substance: POTASSIUM CHLORIDE
     Route: 041
  10. AMINOVEN 10% (AMINO ACIDS) [Suspect]
     Active Substance: AMINO ACIDS
     Route: 041
  11. CALCIUM CHLORIDE. [Suspect]
     Active Substance: CALCIUM CHLORIDE
     Route: 041
  12. FREKA VIT FAT-SOLUBLE [Suspect]
     Active Substance: VITAMINS
     Route: 042

REACTIONS (4)
  - Dizziness [None]
  - Headache [None]
  - Dysgeusia [None]
  - Tachycardia [None]
